FAERS Safety Report 10033189 (Version 2)
Quarter: 2014Q2

REPORT INFORMATION
  Report Type: Report from Study
  Country: JP (occurrence: JP)
  Receive Date: 20140324
  Receipt Date: 20140528
  Transmission Date: 20141212
  Serious: Yes (Other)
  Sender: FDA-Public Use
  Company Number: JP-ABBVIE-14P-087-1215966-00

PATIENT
  Age: 64 Year
  Sex: Male
  Weight: 74 kg

DRUGS (9)
  1. LIPACREON CAPSULES 150MG [Suspect]
     Indication: PANCREATIC INSUFFICIENCY
     Route: 048
     Dates: start: 20130717
  2. RABEPRAZOLE SODIUM [Concomitant]
     Indication: PANCREATIC INSUFFICIENCY
  3. DOMPERIDONE [Concomitant]
     Indication: CHEMOTHERAPY
     Route: 048
     Dates: start: 20130717, end: 20131029
  4. SENNOSIDE [Concomitant]
     Indication: DISEASE COMPLICATION
     Route: 048
  5. SODIUM PICOSULFATE [Concomitant]
     Indication: DISEASE COMPLICATION
     Dosage: A FEW DROPS
     Route: 048
     Dates: start: 20130828, end: 20130924
  6. AMBROXOL HYDROCHLORIDE [Concomitant]
     Indication: CHRONIC OBSTRUCTIVE PULMONARY DISEASE
     Route: 048
     Dates: start: 20131016, end: 20131022
  7. AMBROXOL HYDROCHLORIDE [Concomitant]
     Indication: CHRONIC OBSTRUCTIVE PULMONARY DISEASE
  8. GEMCITABINE HYDROCHLORIDE [Concomitant]
     Indication: PANCREATIC INSUFFICIENCY
     Dosage: NO ADMINISTRATION IN 4TH WEEK: DAILY DOSE: 1800 MILLIGRAM
     Route: 050
     Dates: end: 20131001
  9. ALL OTHER THERAPEUTIC PRODUCTS [Concomitant]
     Indication: PANCREATIC INSUFFICIENCY
     Dosage: DAILY DOSE: 1 MILLILITER
     Route: 050

REACTIONS (2)
  - Chronic obstructive pulmonary disease [Recovering/Resolving]
  - Eczema asteatotic [Recovered/Resolved]
